FAERS Safety Report 23257410 (Version 1)
Quarter: 2023Q4

REPORT INFORMATION
  Report Type: Spontaneous
  Country: US (occurrence: None)
  Receive Date: 20231204
  Receipt Date: 20231204
  Transmission Date: 20240110
  Serious: Yes (Hospitalization)
  Sender: FDA-Public Use
  Company Number: 2023A272589

PATIENT

DRUGS (2)
  1. ANDEXXA [Suspect]
     Active Substance: ANDEXANET ALFA
     Indication: Product used for unknown indication
  2. ANDEXXA [Concomitant]
     Active Substance: ANDEXANET ALFA

REACTIONS (1)
  - Malignant neoplasm progression [Unknown]
